FAERS Safety Report 6421424-7 (Version None)
Quarter: 2009Q4

REPORT INFORMATION
  Report Type: 
  Country: None (occurrence: None)
  Receive Date: 20091029
  Receipt Date: 20091029
  Transmission Date: 20100525
  Serious: Yes (Other)
  Sender: FDA-Public Use
  Company Number: None

PATIENT
  Sex: Female
  Weight: 53.5244 kg

DRUGS (4)
  1. BUPROPION HCL [Suspect]
     Indication: ANXIETY
     Dosage: 150 MG ONE DAILY 9/12/10 FOR 3 1/2 WEEKS
  2. BUPROPION HCL [Suspect]
     Indication: PANIC REACTION
     Dosage: 150 MG ONE DAILY 9/12/10 FOR 3 1/2 WEEKS
  3. LEXAPRO [Suspect]
     Indication: ANXIETY
     Dosage: 10 MG ONE DAILY
     Dates: end: 20081001
  4. LEXAPRO [Suspect]
     Indication: PANIC REACTION
     Dosage: 10 MG ONE DAILY
     Dates: end: 20081001

REACTIONS (4)
  - ANORGASMIA [None]
  - CONSTIPATION [None]
  - SEXUAL DYSFUNCTION [None]
  - URTICARIA [None]
